FAERS Safety Report 11855543 (Version 1)
Quarter: 2015Q4

REPORT INFORMATION
  Report Type: Spontaneous
  Country: US (occurrence: US)
  Receive Date: 20151221
  Receipt Date: 20151221
  Transmission Date: 20160305
  Serious: No
  Sender: FDA-Public Use
  Company Number: US-PERRIGO-15US006473

PATIENT
  Age: 82 Year
  Sex: Female
  Weight: 67.57 kg

DRUGS (6)
  1. HERBAL EXTRACT NOS [Concomitant]
     Active Substance: HERBALS
     Indication: PHYTOTHERAPY
     Dosage: UNK
     Route: 048
  2. MAGNESIUM [Concomitant]
     Active Substance: MAGNESIUM
     Indication: SUPPLEMENTATION THERAPY
     Dosage: UNK
     Route: 048
  3. MUPIROCIN. [Suspect]
     Active Substance: MUPIROCIN
     Indication: BLISTER
     Dosage: 1 SMALL APPLICATION, SINGLE
     Route: 061
     Dates: start: 20150616, end: 20150616
  4. VITAMINS NOS [Concomitant]
     Active Substance: VITAMINS
     Indication: VITAMIN SUPPLEMENTATION
     Dosage: UNK
     Route: 048
  5. MINERALS [Concomitant]
     Active Substance: MINERALS
     Indication: MINERAL SUPPLEMENTATION
     Dosage: UNK
     Route: 048
  6. MUPIROCIN. [Suspect]
     Active Substance: MUPIROCIN
     Indication: SKIN LESION

REACTIONS (4)
  - Diarrhoea [Not Recovered/Not Resolved]
  - Nausea [Not Recovered/Not Resolved]
  - Off label use [Recovered/Resolved]
  - Headache [Not Recovered/Not Resolved]

NARRATIVE: CASE EVENT DATE: 20150616
